FAERS Safety Report 5491153-5 (Version None)
Quarter: 2007Q4

REPORT INFORMATION
  Report Type: 
  Country: None (occurrence: None)
  Receive Date: 20071019
  Receipt Date: 20071010
  Transmission Date: 20080405
  Serious: Yes (Hospitalization, Other)
  Sender: FDA-Public Use
  Company Number: BR-ABBOTT-07P-020-0420398-00

PATIENT
  Age: 48 Year
  Sex: Female
  Weight: 47 kg

DRUGS (8)
  1. HUMIRA [Suspect]
     Indication: RHEUMATOID ARTHRITIS
     Route: 058
     Dates: start: 20070501
  2. METAMIZOLE SODIUM [Concomitant]
     Indication: ARTHRALGIA
     Route: 048
     Dates: start: 20040101
  3. PARACETAMOL [Concomitant]
     Indication: ARTHRALGIA
     Route: 048
     Dates: start: 20040101
  4. PREDNISONE [Concomitant]
     Indication: RHEUMATOID ARTHRITIS
     Route: 048
     Dates: start: 20020101
  5. METHYLPREDNISOLONE [Concomitant]
     Indication: RHEUMATOID ARTHRITIS
     Route: 048
     Dates: start: 20020101
  6. WHOLE BLOOD [Concomitant]
     Indication: ANAEMIA
  7. HUMAN BILIRUBIN [Concomitant]
     Indication: BLOOD BILIRUBIN DECREASED
  8. ALIMENTARY COMPLEMENT [Concomitant]
     Indication: IMMUNE ENHANCEMENT THERAPY

REACTIONS (10)
  - ASPARTATE AMINOTRANSFERASE INCREASED [None]
  - BILIARY TRACT DISORDER [None]
  - CHOLELITHIASIS [None]
  - HEPATITIS [None]
  - HEPATOMEGALY [None]
  - LUNG INJURY [None]
  - PAIN IN EXTREMITY [None]
  - PROCEDURAL COMPLICATION [None]
  - RHEUMATOID ARTHRITIS [None]
  - SPLENOMEGALY [None]
